FAERS Safety Report 6333319-8 (Version None)
Quarter: 2009Q3

REPORT INFORMATION
  Report Type: 
  Country: None (occurrence: None)
  Receive Date: 20090828
  Receipt Date: 20090818
  Transmission Date: 20100115
  Serious: Yes (Other)
  Sender: FDA-Public Use
  Company Number: US-ROCHE-633348

PATIENT
  Sex: Male
  Weight: 102.5 kg

DRUGS (8)
  1. PEG-INTERFERON A-2A (RO 25-8310) [Suspect]
     Indication: HEPATITIS C
     Dosage: FORM: PRE-FILLED SYRINGE
     Route: 065
     Dates: start: 20090303
  2. RIBAVIRIN [Suspect]
     Indication: HEPATITIS C
     Dosage: DIVIDED DOSE
     Route: 065
     Dates: start: 20090303
  3. CARAFATE [Concomitant]
     Dosage: DOSING AMOUNT: 2 TEASPOON
     Dates: start: 20090501
  4. OXYCODONE [Concomitant]
     Indication: PAIN
     Dosage: TAKEN AS NEEDED
  5. LISINOPRIL [Concomitant]
  6. SPIRIVA [Concomitant]
  7. QVAR 40 [Concomitant]
  8. ASMANEX TWISTHALER [Concomitant]

REACTIONS (7)
  - ARTHRITIS [None]
  - DYSPNOEA [None]
  - FEELING ABNORMAL [None]
  - GASTROINTESTINAL ULCER [None]
  - HIATUS HERNIA [None]
  - INJECTION SITE MACULE [None]
  - MUSCULOSKELETAL PAIN [None]
